FAERS Safety Report 12083087 (Version 1)
Quarter: 2016Q1

REPORT INFORMATION
  Report Type: Report from Study
  Country: US (occurrence: US)
  Receive Date: 20160217
  Receipt Date: 20160217
  Transmission Date: 20160526
  Serious: No
  Sender: FDA-Public Use
  Company Number: US-AMGEN-USASL2016016670

PATIENT
  Age: 55 Year
  Sex: Female

DRUGS (3)
  1. ENBREL [Suspect]
     Active Substance: ETANERCEPT
     Indication: RHEUMATOID ARTHRITIS
     Dosage: UNK UNK, UNK
     Route: 065
  2. PERCOCET                           /00446701/ [Concomitant]
     Active Substance: ACETAMINOPHEN\OXYCODONE HYDROCHLORIDE\OXYCODONE TEREPHTHALATE
     Indication: PAIN
     Dosage: 10 PILLS OF 325 MG
  3. XANAX [Concomitant]
     Active Substance: ALPRAZOLAM
     Indication: PAIN
     Dosage: 2 XANAX PER DAY

REACTIONS (7)
  - Muscle spasms [Unknown]
  - Pain in extremity [Unknown]
  - Night sweats [Unknown]
  - Vasodilatation [Unknown]
  - Dysuria [Unknown]
  - Ear pain [Unknown]
  - Pain [Unknown]

NARRATIVE: CASE EVENT DATE: 2016
